FAERS Safety Report 15139149 (Version 1)
Quarter: 2018Q3

REPORT INFORMATION
  Report Type: Spontaneous
  Country: US (occurrence: US)
  Receive Date: 20180618
  Receipt Date: 20180618
  Transmission Date: 20181010
  Serious: No
  Sender: FDA-Public Use
  Company Number: None

PATIENT
  Sex: Female

DRUGS (1)
  1. ENBREL [Suspect]
     Active Substance: ETANERCEPT
     Indication: ASTHMA
     Route: 058
     Dates: start: 20150818

REACTIONS (3)
  - Rhinorrhoea [None]
  - Pruritus [None]
  - Urinary tract infection [None]
